FAERS Safety Report 16041043 (Version 1)
Quarter: 2019Q1

REPORT INFORMATION
  Report Type: Spontaneous
  Country: US (occurrence: US)
  Receive Date: 20190306
  Receipt Date: 20190306
  Transmission Date: 20190418
  Serious: Yes (Hospitalization, Other)
  Sender: FDA-Public Use
  Company Number: US-SA-2019SA061386

PATIENT
  Sex: Female

DRUGS (26)
  1. KRILL OIL [Concomitant]
     Active Substance: DIETARY SUPPLEMENT
  2. HYDROXYZINE PAMOATE. [Concomitant]
     Active Substance: HYDROXYZINE PAMOATE
  3. LEVOTHYROXINE. [Concomitant]
     Active Substance: LEVOTHYROXINE
  4. PIOGLITAZONE. [Concomitant]
     Active Substance: PIOGLITAZONE
  5. DIVALPROEX [Concomitant]
     Active Substance: DIVALPROEX SODIUM
  6. MELATONIN [Concomitant]
     Active Substance: MELATONIN
  7. LORAZEPAM. [Concomitant]
     Active Substance: LORAZEPAM
  8. CLARITHROMYCIN. [Concomitant]
     Active Substance: CLARITHROMYCIN
  9. MVI [VITAMINS NOS] [Concomitant]
  10. ZANTAC [Concomitant]
     Active Substance: RANITIDINE HYDROCHLORIDE
  11. EZETIMIBE. [Concomitant]
     Active Substance: EZETIMIBE
  12. FENOFIBRATE. [Concomitant]
     Active Substance: FENOFIBRATE
  13. AMARYL [Concomitant]
     Active Substance: GLIMEPIRIDE
  14. BENICAR [Concomitant]
     Active Substance: OLMESARTAN MEDOXOMIL
  15. GLYXAMBI [Concomitant]
     Active Substance: EMPAGLIFLOZIN\LINAGLIPTIN
  16. TOUJEO [Concomitant]
     Active Substance: INSULIN GLARGINE
  17. PRALUENT [Suspect]
     Active Substance: ALIROCUMAB
     Indication: HYPERLIPIDAEMIA
     Dosage: 150 MG, QOW
     Route: 058
  18. ACAI BERRY [EUTERPE OLERACEA FRUIT] [Concomitant]
  19. FOLIC ACID. [Concomitant]
     Active Substance: FOLIC ACID
  20. CLOPIDOGREL [Concomitant]
     Active Substance: CLOPIDOGREL BISULFATE
  21. COENZYME Q10 [Concomitant]
     Active Substance: UBIDECARENONE
  22. HYDROCHLOROTHIAZIDE. [Concomitant]
     Active Substance: HYDROCHLOROTHIAZIDE
  23. LANTUS [Concomitant]
     Active Substance: INSULIN GLARGINE
  24. ZANAFLEX [Concomitant]
     Active Substance: TIZANIDINE HYDROCHLORIDE
  25. VITAMIN D3 [Concomitant]
     Active Substance: CHOLECALCIFEROL
  26. TIZANIDINE. [Concomitant]
     Active Substance: TIZANIDINE

REACTIONS (1)
  - Cerebrovascular accident [Unknown]
